FAERS Safety Report 16431677 (Version 2)
Quarter: 2019Q2

REPORT INFORMATION
  Report Type: Spontaneous
  Country: US (occurrence: US)
  Receive Date: 20190614
  Receipt Date: 20190626
  Transmission Date: 20190711
  Serious: No
  Sender: FDA-Public Use
  Company Number: US-KRAMERLABS-2019-US-003505

PATIENT
  Age: 78 Year
  Sex: Male
  Weight: 73.03 kg

DRUGS (1)
  1. NIZORAL A-D [Suspect]
     Active Substance: KETOCONAZOLE
     Indication: DANDRUFF
     Dosage: A 1/3 OF A HAND FULL 2-3 TIMES A WEEK A 1/3 OF A HAND FULL 2-3 TIMES A WEEK
     Route: 061

REACTIONS (1)
  - Drug ineffective [Unknown]
